FAERS Safety Report 5061500-7 (Version None)
Quarter: 2006Q3

REPORT INFORMATION
  Report Type: 
  Country: None (occurrence: None)
  Receive Date: 20060721
  Receipt Date: 20060713
  Transmission Date: 20061208
  Serious: Yes (Hospitalization, Other)
  Sender: FDA-Public Use
  Company Number: HQWYE415809APR04

PATIENT
  Age: 63 Year
  Sex: Male
  Weight: 76.27 kg

DRUGS (2)
  1. MYLOTARG [Suspect]
     Indication: ACUTE MYELOID LEUKAEMIA
     Dosage: SEE IMAGE
     Route: 042
     Dates: start: 20040205, end: 20040205
  2. MYLOTARG [Suspect]
     Indication: ACUTE MYELOID LEUKAEMIA
     Dosage: SEE IMAGE
     Route: 042
     Dates: start: 20040220, end: 20040220

REACTIONS (3)
  - EPISTAXIS [None]
  - FEBRILE NEUTROPENIA [None]
  - PANCYTOPENIA [None]
